FAERS Safety Report 6396544-6 (Version None)
Quarter: 2009Q4

REPORT INFORMATION
  Report Type: 
  Country: None (occurrence: None)
  Receive Date: 20091012
  Receipt Date: 20091005
  Transmission Date: 20100525
  Serious: Yes (Hospitalization)
  Sender: FDA-Public Use
  Company Number: US-ALEXION-A200900800

PATIENT
  Sex: Male

DRUGS (4)
  1. SOLIRIS [Suspect]
     Indication: PAROXYSMAL NOCTURNAL HAEMOGLOBINURIA
     Dosage: 600 MG, UNK
     Route: 042
     Dates: start: 20080128, end: 20080218
  2. SOLIRIS [Suspect]
     Dosage: 900 MG, Q 2 WKS
     Route: 042
     Dates: start: 20080225, end: 20080728
  3. SOLIRIS [Suspect]
     Dosage: 900 MG, Q 2 WKS
     Route: 042
     Dates: start: 20080918
  4. SOLIRIS [Suspect]
     Dosage: 900 MG, Q WK
     Route: 042

REACTIONS (3)
  - DYSPNOEA [None]
  - FATIGUE [None]
  - PLEURAL EFFUSION [None]
